FAERS Safety Report 10208499 (Version 2)
Quarter: 2014Q2

REPORT INFORMATION
  Report Type: Spontaneous
  Country: JP (occurrence: JP)
  Receive Date: 20140530
  Receipt Date: 20140610
  Transmission Date: 20141212
  Serious: Yes (Hospitalization)
  Sender: FDA-Public Use
  Company Number: JP-GLAXOSMITHKLINE-B0988785A

PATIENT
  Age: 58 Year
  Sex: Male

DRUGS (6)
  1. VALTREX [Suspect]
     Indication: OPHTHALMIC HERPES SIMPLEX
     Dosage: 500MG TWICE PER DAY
     Route: 048
     Dates: start: 20140419, end: 20140422
  2. DIOVAN [Concomitant]
     Indication: HYPERTENSION
     Dosage: 80MG TWICE PER DAY
     Route: 048
     Dates: start: 200906, end: 20140523
  3. AMLODIPINE [Concomitant]
     Indication: HYPERTENSION
     Dosage: 5MG TWICE PER DAY
     Route: 048
     Dates: start: 200906, end: 20140522
  4. TAKEPRON [Concomitant]
     Indication: GASTROOESOPHAGEAL REFLUX DISEASE
     Dosage: 15MG PER DAY
     Route: 048
     Dates: start: 200906, end: 20140522
  5. ROCALTROL [Concomitant]
     Indication: HYPERPARATHYROIDISM SECONDARY
     Dosage: .25MCG PER DAY
     Route: 048
     Dates: start: 200906, end: 20140522
  6. CALTAN [Concomitant]
     Indication: HYPERPHOSPHATAEMIA
     Dosage: 500MG THREE TIMES PER DAY
     Route: 048
     Dates: start: 200906, end: 20140522

REACTIONS (6)
  - Ataxia [Recovered/Resolved]
  - Dysarthria [Recovered/Resolved]
  - Toxicity to various agents [Unknown]
  - Encephalopathy [Recovered/Resolved]
  - Hot flush [Recovering/Resolving]
  - Dizziness [Recovering/Resolving]
